FAERS Safety Report 7148466-0 (Version None)
Quarter: 2010Q4

REPORT INFORMATION
  Report Type: 
  Country: None (occurrence: None)
  Receive Date: 20101209
  Receipt Date: 20101129
  Transmission Date: 20110411
  Serious: Yes (Other)
  Sender: FDA-Public Use
  Company Number: PHHY2009BR31307

PATIENT
  Sex: Female

DRUGS (2)
  1. DIOVAN TRIPLE [Suspect]
     Indication: HYPERTENSION
     Dosage: 160/5/12.5 MG, UNK
     Route: 048
  2. SIBUTRAMINE HYDROCHLORIDE MONOHYDRATE [Concomitant]
     Dosage: 15 MG, QD
     Dates: end: 20090724

REACTIONS (6)
  - ABDOMINAL DISTENSION [None]
  - ERYTHEMA [None]
  - FEELING ABNORMAL [None]
  - HYPOTENSION [None]
  - OBESITY SURGERY [None]
  - OCULAR HYPERAEMIA [None]
